FAERS Safety Report 24849978 (Version 1)
Quarter: 2025Q1

REPORT INFORMATION
  Report Type: Spontaneous
  Country: US (occurrence: US)
  Receive Date: 20250116
  Receipt Date: 20250116
  Transmission Date: 20250408
  Serious: Yes (Other)
  Sender: BRISTOL-MYERS SQUIBB COMPANY
  Company Number: US-BRISTOL-MYERS SQUIBB COMPANY-2025-003669

PATIENT
  Age: 54 Year
  Sex: Male

DRUGS (11)
  1. REVLIMID [Suspect]
     Active Substance: LENALIDOMIDE
     Indication: Plasma cell myeloma
     Dosage: TAKE 1 CAPUSLE BY MOUTH DAILY FOR 14 DAYS THEN NONE FOR 7 DAYS
     Route: 048
     Dates: start: 20240823
  2. ACYCLOVIR [Concomitant]
     Active Substance: ACYCLOVIR
  3. ALBUTEROL SULFATE [Concomitant]
     Active Substance: ALBUTEROL SULFATE
  4. ALLOPURINOL [Concomitant]
     Active Substance: ALLOPURINOL
  5. ASPIRIN [Concomitant]
     Active Substance: ASPIRIN
  6. CETIRIZINE HCL [Concomitant]
     Active Substance: CETIRIZINE HYDROCHLORIDE
  7. CLONAZEPAM [Concomitant]
     Active Substance: CLONAZEPAM
  8. DARZALEX FASPRO [Concomitant]
     Active Substance: DARATUMUMAB\HYALURONIDASE-FIHJ
  9. DEXAMETHASONE [Concomitant]
     Active Substance: DEXAMETHASONE
  10. DULOXETINE [Concomitant]
     Active Substance: DULOXETINE
  11. XGEVA [Concomitant]
     Active Substance: DENOSUMAB

REACTIONS (8)
  - Erectile dysfunction [Unknown]
  - Restless legs syndrome [Unknown]
  - Constipation [Unknown]
  - Pain [Unknown]
  - Dyspepsia [Unknown]
  - Nausea [Unknown]
  - Tumour lysis syndrome [Unknown]
  - Off label use [Unknown]
